FAERS Safety Report 5427082-2 (Version None)
Quarter: 2007Q3

REPORT INFORMATION
  Report Type: 
  Country: None (occurrence: None)
  Receive Date: 20070828
  Receipt Date: 20070816
  Transmission Date: 20080115
  Serious: Yes (Other)
  Sender: FDA-Public Use
  Company Number: PHBS2007SE13787

PATIENT
  Age: 21 Year
  Sex: Male

DRUGS (5)
  1. RITALIN [Suspect]
     Dosage: 150 MG, ONCE/SINGLE
  2. RITALIN [Suspect]
  3. CONCERTA [Suspect]
     Dosage: 360 MG, ONCE/SINGLE
  4. CONCERTA [Suspect]
  5. ZOLPIDEM TARTRATE [Concomitant]
     Dosage: 80 MG, UNK

REACTIONS (8)
  - AGITATION [None]
  - BLOOD PRESSURE INCREASED [None]
  - DISORIENTATION [None]
  - DRUG TOXICITY [None]
  - HALLUCINATION [None]
  - PHOTOPHOBIA [None]
  - SPEECH DISORDER [None]
  - TACHYCARDIA [None]
